FAERS Safety Report 18538509 (Version 1)
Quarter: 2020Q4

REPORT INFORMATION
  Report Type: Report from Study
  Country: BR (occurrence: BR)
  Receive Date: 20201124
  Receipt Date: 20201124
  Transmission Date: 20210114
  Serious: Yes (Disabling, Other)
  Sender: FDA-Public Use
  Company Number: NVSC2020BR311447

PATIENT
  Sex: Female

DRUGS (1)
  1. DIOVAN HCT [Suspect]
     Active Substance: HYDROCHLOROTHIAZIDE\VALSARTAN
     Indication: PRODUCT USED FOR UNKNOWN INDICATION
     Dosage: 2 DF, BID (IN THE MORNING AND AT NIGHT) (160/12 AND A HALF)
     Route: 065

REACTIONS (13)
  - Blindness unilateral [Not Recovered/Not Resolved]
  - Drug hypersensitivity [Unknown]
  - Hypotension [Unknown]
  - Blood pressure decreased [Unknown]
  - Blood pressure fluctuation [Unknown]
  - Blindness [Recovered/Resolved with Sequelae]
  - Intraocular pressure decreased [Unknown]
  - Somnolence [Unknown]
  - Swelling [Unknown]
  - Hepatic steatosis [Unknown]
  - Hypertension [Unknown]
  - Blood pressure increased [Unknown]
  - Cough [Unknown]

NARRATIVE: CASE EVENT DATE: 2019
